FAERS Safety Report 21310445 (Version 5)
Quarter: 2023Q1

REPORT INFORMATION
  Report Type: Spontaneous
  Country: JP (occurrence: JP)
  Receive Date: 20220909
  Receipt Date: 20230224
  Transmission Date: 20230417
  Serious: Yes (Other)
  Sender: FDA-Public Use
  Company Number: JP-UNITED THERAPEUTICS-UNT-2022-018319

PATIENT
  Age: 14 Year
  Sex: Male
  Weight: 26.9 kg

DRUGS (19)
  1. UNITUXIN [Suspect]
     Active Substance: DINUTUXIMAB
     Indication: Neuroblastoma recurrent
     Dosage: 17.5 MG/M2, CYCLICAL (CYCLE 1)
     Route: 041
     Dates: start: 20220808, end: 20220808
  2. UNITUXIN [Suspect]
     Active Substance: DINUTUXIMAB
     Dosage: 8.75 MG/M2, CYCLICAL (CYCLE 1)
     Route: 041
     Dates: start: 20220808, end: 20220811
  3. UNITUXIN [Suspect]
     Active Substance: DINUTUXIMAB
     Dosage: 0.875 MG/M2 (50% OF NORMAL), CYCLICAL (CYCLE 2)
     Route: 041
     Dates: start: 20220912, end: 20220912
  4. UNITUXIN [Suspect]
     Active Substance: DINUTUXIMAB
     Dosage: UNK (INCREASED TO 70% OF NORMAL + AND RETURNED TO 0.875 MG/M2/H AFTER 4 HOURS), CYCLICAL (CYCLE 2)
     Route: 041
     Dates: start: 20220912, end: 20220912
  5. UNITUXIN [Suspect]
     Active Substance: DINUTUXIMAB
     Dosage: UNK, CYCLICAL (INITIATED AT 0.875 MG/M2/H, ESCALATED TO 1.75 MG/M2/H, COMPLETED AT FULL DOSE OF 17.5
     Route: 041
     Dates: start: 20220913, end: 20220915
  6. UNITUXIN [Suspect]
     Active Substance: DINUTUXIMAB
     Dosage: UNK, CYCLICAL (CYCLE 3)
     Route: 065
     Dates: start: 20221011, end: 2022
  7. UNITUXIN [Suspect]
     Active Substance: DINUTUXIMAB
     Dosage: 17.5 MG/M2, CYCLICAL (CYCLE 4)
     Route: 041
     Dates: start: 20221114, end: 20221117
  8. UNITUXIN [Suspect]
     Active Substance: DINUTUXIMAB
     Dosage: 17.5 MG/M2, CYCLICAL (CYCLE 5)
     Route: 041
     Dates: start: 20221212, end: 20221215
  9. UNITUXIN [Suspect]
     Active Substance: DINUTUXIMAB
     Dosage: 17.5 MG/M2, CYCLICAL (CYCLE 6)
     Route: 041
     Dates: start: 20230117, end: 20230120
  10. FILGRASTIM [Suspect]
     Active Substance: FILGRASTIM
     Indication: Neuroblastoma recurrent
     Dosage: 5 ?G/KG, UNK (CYCLE 1)
     Route: 058
     Dates: start: 20220805, end: 20220817
  11. FILGRASTIM [Suspect]
     Active Substance: FILGRASTIM
     Dosage: UNK
     Route: 058
     Dates: start: 20220819, end: 20220820
  12. MORPHINE [Suspect]
     Active Substance: MORPHINE
     Indication: Pain
     Dosage: UNK
     Route: 040
     Dates: start: 20220808, end: 20220812
  13. MORPHINE [Suspect]
     Active Substance: MORPHINE
     Indication: Prophylaxis
     Dosage: UNK
     Route: 040
     Dates: start: 20220912
  14. TECELEUKIN [Suspect]
     Active Substance: TECELEUKIN
     Indication: Neuroblastoma recurrent
     Dosage: UNK, (25% OF THE STANDARD DAILY DOSE) CYCLICAL
     Route: 065
     Dates: start: 20220905
  15. TECELEUKIN [Suspect]
     Active Substance: TECELEUKIN
     Dosage: UNK, (AT 50% OF THE STANDARD DAILY DOSE) CYCLICAL
     Route: 065
     Dates: start: 2022
  16. TECELEUKIN [Suspect]
     Active Substance: TECELEUKIN
     Dosage: UNK, (AT 100% OF THE STANDARD DAILY DOSE) CYCLICAL
     Route: 065
     Dates: start: 20230110, end: 20230113
  17. TECELEUKIN [Suspect]
     Active Substance: TECELEUKIN
     Dosage: UNK, CYCLICAL
     Route: 065
     Dates: start: 20230117, end: 20230120
  18. HYDROXYZINE HYDROCHLORIDE [Concomitant]
     Active Substance: HYDROXYZINE HYDROCHLORIDE
     Indication: Prophylaxis
     Dosage: UNK
     Route: 065
     Dates: start: 20220808, end: 20220811
  19. ACETAMINOPHEN [Concomitant]
     Active Substance: ACETAMINOPHEN
     Indication: Prophylaxis
     Dosage: UNK
     Route: 065
     Dates: start: 20220808, end: 20220811

REACTIONS (18)
  - Urinary retention [Recovered/Resolved]
  - Altered state of consciousness [Recovering/Resolving]
  - Chest pain [Recovered/Resolved]
  - Pain in extremity [Recovered/Resolved]
  - Abdominal pain [Recovered/Resolved]
  - Pyrexia [Recovered/Resolved]
  - Vomiting [Recovered/Resolved]
  - Somnolence [Recovering/Resolving]
  - White blood cell count increased [Recovering/Resolving]
  - Heart rate abnormal [Unknown]
  - Pain in extremity [Recovering/Resolving]
  - Pyrexia [Recovering/Resolving]
  - Headache [Recovering/Resolving]
  - Pyrexia [Recovering/Resolving]
  - Pyrexia [Recovering/Resolving]
  - Headache [Recovering/Resolving]
  - Abdominal pain [Recovering/Resolving]
  - Platelet count decreased [Recovered/Resolved]

NARRATIVE: CASE EVENT DATE: 20220801
